FAERS Safety Report 11595619 (Version 1)
Quarter: 2015Q4

REPORT INFORMATION
  Report Type: Spontaneous
  Country: US (occurrence: None)
  Receive Date: 20151005
  Receipt Date: 20151005
  Transmission Date: 20160304
  Serious: Yes (Other)
  Sender: FDA-Public Use
  Company Number: None

PATIENT
  Age: 77 Year
  Sex: Female
  Weight: 57.15 kg

DRUGS (1)
  1. PROLIA [Suspect]
     Active Substance: DENOSUMAB
     Indication: OSTEOPOROSIS
     Dosage: 60 MG SC TWICE PER YEAR, EVERY 6 MONTHS
     Route: 058
     Dates: start: 20150805

REACTIONS (5)
  - Hypotension [None]
  - Dyspnoea [None]
  - Leukocytosis [None]
  - Urinary tract infection [None]
  - Emphysema [None]

NARRATIVE: CASE EVENT DATE: 20150916
